FAERS Safety Report 4866515-7 (Version None)
Quarter: 2005Q4

REPORT INFORMATION
  Report Type: 
  Country: None (occurrence: None)
  Receive Date: 20051227
  Receipt Date: 20051222
  Transmission Date: 20060501
  Serious: Yes (Life-Threatening, Hospitalization, Other)
  Sender: FDA-Public Use
  Company Number: 2005AP06558

PATIENT
  Age: 50 Year
  Sex: Male

DRUGS (3)
  1. ATENOLOL [Suspect]
     Indication: ANGINA PECTORIS
     Route: 048
  2. AMLODIPINE [Suspect]
     Indication: ANGINA PECTORIS
  3. ARTHROTEC [Suspect]
     Indication: OSTEOARTHRITIS

REACTIONS (12)
  - ATRIOVENTRICULAR BLOCK COMPLETE [None]
  - BACK PAIN [None]
  - BLOOD PRESSURE SYSTOLIC DECREASED [None]
  - BRADYCARDIA [None]
  - DIZZINESS [None]
  - DRUG INEFFECTIVE [None]
  - DRUG TOXICITY [None]
  - LOSS OF CONSCIOUSNESS [None]
  - METABOLIC ACIDOSIS [None]
  - OVERDOSE [None]
  - RENAL FAILURE [None]
  - SHOCK [None]
